FAERS Safety Report 13392203 (Version 6)
Quarter: 2017Q2

REPORT INFORMATION
  Report Type: Spontaneous
  Country: JP (occurrence: JP)
  Receive Date: 20170331
  Receipt Date: 20170525
  Transmission Date: 20170830
  Serious: Yes (Death)
  Sender: FDA-Public Use
  Company Number: JP-EISAI MEDICAL RESEARCH-EC-2017-026292

PATIENT
  Age: 13 Year
  Sex: Female
  Weight: 40 kg

DRUGS (10)
  1. FYCOMPA [Suspect]
     Active Substance: PERAMPANEL
     Route: 048
     Dates: start: 20161220, end: 20170116
  2. FYCOMPA [Suspect]
     Active Substance: PERAMPANEL
     Indication: TEMPORAL LOBE EPILEPSY
     Route: 048
     Dates: start: 20161122, end: 20161219
  3. LONGES [Concomitant]
     Active Substance: LISINOPRIL
     Indication: PRODUCT USED FOR UNKNOWN INDICATION
     Dosage: UNKNOWN
     Route: 048
     Dates: start: 20121010, end: 20170327
  4. FYCOMPA [Suspect]
     Active Substance: PERAMPANEL
     Route: 048
     Dates: start: 20170117, end: 20170212
  5. FYCOMPA [Suspect]
     Active Substance: PERAMPANEL
     Route: 048
     Dates: start: 20170213, end: 201702
  6. DEPAKENE [Concomitant]
     Active Substance: VALPROIC ACID
     Indication: PRODUCT USED FOR UNKNOWN INDICATION
     Dosage: UNKNOWN
     Route: 048
     Dates: start: 20150317, end: 20170327
  7. RIVOTRIL [Concomitant]
     Active Substance: CLONAZEPAM
     Indication: PRODUCT USED FOR UNKNOWN INDICATION
     Dosage: UNKNOWN
     Route: 048
     Dates: start: 20160419, end: 20161128
  8. FYCOMPA [Suspect]
     Active Substance: PERAMPANEL
     Dosage: ALTERNATING WITH 4 MG ONCE DAILY (EVERY OTHER DAY)
     Route: 048
     Dates: start: 201702, end: 20170326
  9. FYCOMPA [Suspect]
     Active Substance: PERAMPANEL
     Dosage: ALTERNATING WITH 2 MG ONCE DAILY (EVERY OTHER DAY)
     Route: 048
     Dates: start: 201702, end: 20170326
  10. RIVOTRIL [Concomitant]
     Active Substance: CLONAZEPAM
     Dosage: DOSE REDUCED
     Route: 048
     Dates: start: 20161129, end: 20170327

REACTIONS (6)
  - Fall [Fatal]
  - Anxiety [Recovering/Resolving]
  - Aggression [Recovering/Resolving]
  - Somnolence [Recovering/Resolving]
  - Depression [Recovering/Resolving]
  - Dizziness [Recovering/Resolving]

NARRATIVE: CASE EVENT DATE: 20161123
